FAERS Safety Report 4627965-7 (Version None)
Quarter: 2005Q2

REPORT INFORMATION
  Report Type: 
  Country: None (occurrence: None)
  Receive Date: 20050401
  Receipt Date: 20050318
  Transmission Date: 20051028
  Serious: Yes (Other)
  Sender: FDA-Public Use
  Company Number: S05-FRA-01248-01

PATIENT
  Age: 32 Year
  Sex: Male

DRUGS (5)
  1. CITALOPRAM HYDROBROMIDE [Suspect]
     Dosage: 20 MG QD PO
     Route: 048
  2. ATARAX [Suspect]
  3. VENTOLIN [Concomitant]
  4. SINGULAIR [Concomitant]
  5. SERETIDE (FLUTICASONE/SALMETEROL) [Concomitant]

REACTIONS (3)
  - BLOOD CREATINE PHOSPHOKINASE INCREASED [None]
  - MYALGIA [None]
  - TRANSAMINASES INCREASED [None]
